FAERS Safety Report 9311704 (Version 1)
Quarter: 2013Q2

REPORT INFORMATION
  Report Type: Report from Study
  Country: BR (occurrence: BR)
  Receive Date: 20130528
  Receipt Date: 20130528
  Transmission Date: 20140414
  Serious: Yes (Other)
  Sender: FDA-Public Use
  Company Number: BR-ROCHE-1227825

PATIENT
  Sex: Female
  Weight: 75 kg

DRUGS (3)
  1. MABTHERA [Suspect]
     Indication: RHEUMATOID ARTHRITIS
     Route: 065
     Dates: start: 20130115
  2. OMEPRAZOLE [Concomitant]
     Indication: LIVER DISORDER
  3. ENALAPRIL [Concomitant]
     Indication: HYPERTENSION
     Route: 065

REACTIONS (8)
  - Hepatic neoplasm [Unknown]
  - Blindness [Unknown]
  - Gastric disorder [Unknown]
  - Arthralgia [Unknown]
  - Pain in extremity [Unknown]
  - Joint swelling [Unknown]
  - Local swelling [Unknown]
  - Lacrimation decreased [Unknown]
